FAERS Safety Report 5937706-9 (Version None)
Quarter: 2008Q4

REPORT INFORMATION
  Report Type: 
  Country: None (occurrence: None)
  Receive Date: 20081031
  Receipt Date: 20081021
  Transmission Date: 20090506
  Serious: Yes (Disabling)
  Sender: FDA-Public Use
  Company Number: CA-JNJFOC-20081004650

PATIENT
  Age: 51 Year
  Sex: Male
  Weight: 108.86 kg

DRUGS (4)
  1. RALIVIA [Suspect]
     Indication: PAIN
     Dosage: ONCE DAILY AT BEDTIME
     Route: 048
  2. NAPROXEN [Concomitant]
  3. ACETAMINOPHEN [Concomitant]
  4. PEPCID [Concomitant]

REACTIONS (6)
  - ACTIVITIES OF DAILY LIVING IMPAIRED [None]
  - ASTHENIA [None]
  - DIZZINESS [None]
  - HYPERSOMNIA [None]
  - NAUSEA [None]
  - UNDERDOSE [None]
